FAERS Safety Report 5775332-5 (Version None)
Quarter: 2008Q2

REPORT INFORMATION
  Report Type: 
  Country: None (occurrence: None)
  Receive Date: 20080616
  Receipt Date: 20080616
  Transmission Date: 20081010
  Serious: Yes (Hospitalization)
  Sender: FDA-Public Use
  Company Number: None

PATIENT
  Sex: Female
  Weight: 86.1834 kg

DRUGS (3)
  1. TEMODAR [Suspect]
     Indication: CERVIX CARCINOMA
     Dosage: 100MG QD,3WKS ON, 1WK OFF PO
     Route: 048
     Dates: start: 20080527, end: 20080611
  2. XELODA [Suspect]
     Dosage: 2000MG QD,3WKS ON,1K OFF PO
     Route: 048
     Dates: start: 20080527, end: 20080611
  3. THALIDOMIDE [Concomitant]

REACTIONS (1)
  - SMALL INTESTINAL OBSTRUCTION [None]
